FAERS Safety Report 23518962 (Version 5)
Quarter: 2024Q2

REPORT INFORMATION
  Report Type: Spontaneous
  Country: US (occurrence: US)
  Receive Date: 20240213
  Receipt Date: 20240520
  Transmission Date: 20240716
  Serious: Yes (Hospitalization, Other)
  Sender: FDA-Public Use
  Company Number: US-AMGEN-USASP2024026064

PATIENT
  Age: 58 Year
  Sex: Male

DRUGS (18)
  1. CARFILZOMIB [Suspect]
     Active Substance: CARFILZOMIB
     Indication: Plasma cell myeloma
     Dosage: 41 MILLIGRAM
     Route: 065
     Dates: start: 20231004, end: 20231005
  2. DEXAMETHASONE [Suspect]
     Active Substance: DEXAMETHASONE
     Indication: Plasma cell myeloma
     Dosage: 40 MILLIGRAM
     Route: 065
     Dates: start: 20231004, end: 20231004
  3. DEXAMETHASONE [Suspect]
     Active Substance: DEXAMETHASONE
     Dosage: 20 MILLIGRAM
     Route: 065
     Dates: start: 20231012, end: 20231013
  4. DEXAMETHASONE [Suspect]
     Active Substance: DEXAMETHASONE
     Dosage: 40 MILLIGRAM
     Route: 065
     Dates: start: 20231014, end: 20231015
  5. CISPLATIN [Suspect]
     Active Substance: CISPLATIN
     Indication: Plasma cell myeloma
     Dosage: 15 MILLIGRAM
     Route: 065
     Dates: start: 20231012, end: 20231017
  6. ETOPOSIDE [Suspect]
     Active Substance: ETOPOSIDE
     Indication: Plasma cell myeloma
     Dosage: 59 MILLIGRAM
     Route: 065
     Dates: start: 20231012, end: 20231017
  7. CYCLOPHOSPHAMIDE [Suspect]
     Active Substance: CYCLOPHOSPHAMIDE
     Indication: Plasma cell myeloma
     Dosage: 600 MILLIGRAM, QD
     Route: 065
     Dates: start: 20231004, end: 20231004
  8. CYCLOPHOSPHAMIDE [Suspect]
     Active Substance: CYCLOPHOSPHAMIDE
     Dosage: 800 MILLIGRAM
     Route: 065
     Dates: start: 20231012, end: 20231017
  9. CYCLOPHOSPHAMIDE [Suspect]
     Active Substance: CYCLOPHOSPHAMIDE
     Dosage: 600 MILLIGRAM
     Route: 042
     Dates: start: 20231122, end: 20231124
  10. FLUDARABINE [Suspect]
     Active Substance: FLUDARABINE PHOSPHATE
     Indication: Plasma cell myeloma
     Dosage: 48.75 MILLIGRAM, QD (1 IN 1 DAY)
     Route: 042
     Dates: start: 20231122, end: 20231124
  11. BETAHISTINE HYDROCHLORIDE [Suspect]
     Active Substance: BETAHISTINE HYDROCHLORIDE
     Indication: Plasma cell myeloma
     Dosage: UNK
     Route: 042
     Dates: start: 20231128, end: 20231128
  12. ACYCLOVIR [Concomitant]
     Active Substance: ACYCLOVIR
     Indication: Infection prophylaxis
     Dosage: 400 MILLIGRAM, BID
     Route: 048
     Dates: start: 20230703
  13. ALLOPURINOL [Concomitant]
     Active Substance: ALLOPURINOL
     Indication: Prophylaxis
     Dosage: 100 MILLIGRAM, QD (1 IN 1 DAY)
     Route: 048
     Dates: start: 20231124
  14. ATORVASTATIN [Concomitant]
     Active Substance: ATORVASTATIN
     Indication: Hyperlipidaemia
     Dosage: 40 MILLIGRAM, QD (1 IN 1 DAY)
     Route: 048
     Dates: start: 20210323
  15. MAGNESIUM SULFATE [Concomitant]
     Active Substance: MAGNESIUM SULFATE\MAGNESIUM SULFATE HEPTAHYDRATE
     Indication: Hypomagnesaemia
     Dosage: 2 GRAM, QD
     Route: 042
     Dates: start: 20240105, end: 20240105
  16. NIVESTYM [Concomitant]
     Active Substance: FILGRASTIM-AAFI
     Indication: Neutropenia
     Dosage: 300 MICROGRAM, QD (1 IN 1 DAY)
     Route: 058
     Dates: start: 20231221, end: 20231222
  17. NIVESTYM [Concomitant]
     Active Substance: FILGRASTIM-AAFI
     Dosage: 600 MICROGRAM, QD (1 IN 1 DAY)
     Route: 042
     Dates: start: 20240102, end: 20240106
  18. ZARXIO [Concomitant]
     Active Substance: FILGRASTIM-SNDZ
     Indication: Neutropenia
     Dosage: 480 MICROGRAM, QD (1 IN 1 DAY)
     Route: 058
     Dates: start: 20240107, end: 20240113

REACTIONS (8)
  - Haemorrhoidal haemorrhage [Recovered/Resolved]
  - Thrombocytopenia [Recovered/Resolved]
  - Neutropenia [Not Recovered/Not Resolved]
  - Asthenia [Unknown]
  - Palpitations [Unknown]
  - Dizziness [Unknown]
  - Hypomagnesaemia [Not Recovered/Not Resolved]
  - Off label use [Unknown]

NARRATIVE: CASE EVENT DATE: 20231004
